FAERS Safety Report 8314754-5 (Version None)
Quarter: 2012Q2

REPORT INFORMATION
  Report Type: 
  Country: None (occurrence: None)
  Receive Date: 20120426
  Receipt Date: 20120423
  Transmission Date: 20120825
  Serious: Yes (Hospitalization)
  Sender: FDA-Public Use
  Company Number: DE-ELI_LILLY_AND_COMPANY-DE201204008036

PATIENT
  Age: 62 Year
  Sex: Female

DRUGS (2)
  1. METFORMIN HCL [Concomitant]
     Dosage: 1000 MG, QD
     Dates: start: 20110101
  2. BYETTA [Suspect]
     Dosage: 5 UG, BID
     Route: 058
     Dates: start: 20120215, end: 20120228

REACTIONS (3)
  - ABDOMINAL DISCOMFORT [None]
  - PANCREATIC ENZYME ABNORMALITY [None]
  - NAUSEA [None]
